FAERS Safety Report 8349380-5 (Version None)
Quarter: 2012Q2

REPORT INFORMATION
  Report Type: 
  Country: None (occurrence: None)
  Receive Date: 20120510
  Receipt Date: 20120430
  Transmission Date: 20120825
  Serious: Yes (Other)
  Sender: FDA-Public Use
  Company Number: US-JNJFOC-20120501111

PATIENT
  Sex: Female
  Weight: 53.07 kg

DRUGS (5)
  1. SYNTHROID [Concomitant]
     Indication: THYROID DISORDER
     Route: 048
     Dates: start: 20040101
  2. METHOTREXATE [Concomitant]
     Indication: RHEUMATOID ARTHRITIS
     Route: 048
     Dates: start: 20090101, end: 20120404
  3. REMICADE [Suspect]
     Indication: RHEUMATOID ARTHRITIS
     Route: 042
     Dates: start: 20110101, end: 20120328
  4. PLAQUENIL [Concomitant]
     Indication: BLOOD CHOLESTEROL
     Route: 048
     Dates: start: 20090101, end: 20120404
  5. FOSAMAX [Concomitant]
     Indication: OSTEOPENIA
     Route: 048
     Dates: start: 20060101

REACTIONS (1)
  - BLOOD URINE PRESENT [None]
